FAERS Safety Report 20903406 (Version 1)
Quarter: 2022Q2

REPORT INFORMATION
  Report Type: Spontaneous
  Country: PL (occurrence: PL)
  Receive Date: 20220601
  Receipt Date: 20220601
  Transmission Date: 20220720
  Serious: Yes (Life-Threatening, Other)
  Sender: FDA-Public Use
  Company Number: None

PATIENT
  Age: 62 Year
  Sex: Female
  Weight: 83 kg

DRUGS (4)
  1. SODIUM CHLORIDE [Suspect]
     Active Substance: SODIUM CHLORIDE
     Indication: Intervertebral disc disorder
     Dosage: 100 ML
     Route: 042
     Dates: start: 20180719, end: 20180719
  2. WATER FOR INJECTION [Suspect]
     Active Substance: WATER
     Indication: Intervertebral disc disorder
     Route: 042
     Dates: start: 20180719, end: 20180719
  3. CEFUROXIME SODIUM [Suspect]
     Active Substance: CEFUROXIME SODIUM
     Indication: Intervertebral disc disorder
     Dosage: INTRAVENOUS OTHERWISE NOT SPECIFIED
     Route: 042
     Dates: start: 20180719, end: 20180719
  4. NITRAZEPAM [Suspect]
     Active Substance: NITRAZEPAM
     Indication: Intervertebral disc disorder
     Route: 048
     Dates: start: 20180719, end: 20180719

REACTIONS (3)
  - Anaphylactic shock [Not Recovered/Not Resolved]
  - Resuscitation [Unknown]
  - Endotracheal intubation [Unknown]

NARRATIVE: CASE EVENT DATE: 20180719
